FAERS Safety Report 4646865-X (Version None)
Quarter: 2005Q2

REPORT INFORMATION
  Report Type: 
  Country: None (occurrence: None)
  Receive Date: 20050331
  Receipt Date: 20050114
  Transmission Date: 20051028
  Serious: No
  Sender: FDA-Public Use
  Company Number: 05P-163-0286758-00

PATIENT
  Age: 65 Year
  Sex: Female
  Weight: 81.6475 kg

DRUGS (7)
  1. HUMIRA [Suspect]
     Indication: RHEUMATOID ARTHRITIS
     Dosage: 40 MG, 1 IN 2 WK, SUBCUTANEOUS
     Route: 058
     Dates: start: 20050109
  2. ACEBUTOLOL [Concomitant]
  3. GLIBOMET [Concomitant]
  4. LEVOTHYROXINE SODIUM [Concomitant]
  5. ESTRADIOL [Concomitant]
  6. ATORVASTATIN CALCIUM [Concomitant]
  7. PARACETAMOL [Concomitant]

REACTIONS (6)
  - BLOOD GLUCOSE INCREASED [None]
  - BLOOD PRESSURE INCREASED [None]
  - DYSPNOEA [None]
  - FATIGUE [None]
  - RHEUMATOID ARTHRITIS [None]
  - TOOTHACHE [None]
